FAERS Safety Report 11212132 (Version 2)
Quarter: 2015Q3

REPORT INFORMATION
  Report Type: Spontaneous
  Country: US (occurrence: US)
  Receive Date: 20150623
  Receipt Date: 20150722
  Transmission Date: 20151125
  Serious: Yes (Other)
  Sender: FDA-Public Use
  Company Number: US-BAYER-2015-361355

PATIENT
  Age: 44 Year
  Sex: Male

DRUGS (1)
  1. ULTRAVIST [Suspect]
     Active Substance: IOPROMIDE
     Dosage: 95 ML, ONCE
     Dates: start: 20150617, end: 20150617

REACTIONS (4)
  - Pruritus [None]
  - Pruritus generalised [None]
  - Swelling [None]
  - Nausea [None]

NARRATIVE: CASE EVENT DATE: 201506
